FAERS Safety Report 9630723 (Version 1)
Quarter: 2013Q4

REPORT INFORMATION
  Report Type: Spontaneous
  Country: US (occurrence: None)
  Receive Date: 20131016
  Receipt Date: 20131016
  Transmission Date: 20140711
  Serious: Yes (Life-Threatening)
  Sender: FDA-Public Use
  Company Number: None

PATIENT
  Age: 53 Year
  Sex: Female
  Weight: 72 kg

DRUGS (20)
  1. CARBOPLATIN [Suspect]
     Indication: OVARIAN CANCER METASTATIC
     Route: 042
     Dates: start: 20130822, end: 20130822
  2. CARBOPLATIN [Suspect]
     Indication: DISEASE RECURRENCE
     Route: 042
     Dates: start: 20130822, end: 20130822
  3. ONDANSETRON [Concomitant]
  4. DEXAMETHASONE [Concomitant]
  5. FAMOTIDINE [Concomitant]
  6. DIPHENHYDRAMINE [Concomitant]
  7. PACLITAXEL [Concomitant]
  8. PROGRAF [Concomitant]
  9. MYCOPHENOLATE MOFETIL [Concomitant]
  10. AMLODIPINE [Concomitant]
  11. BENTYL [Concomitant]
  12. DUONEB [Concomitant]
  13. HYDROCHLOROTHIAZIDE [Concomitant]
  14. LANTUS INSULIN [Concomitant]
  15. MIRALAX [Concomitant]
  16. PREDNISONE [Concomitant]
  17. PROCHLORPERAZINE [Concomitant]
  18. PROVENTIL [Concomitant]
  19. SPIRIVA [Concomitant]
  20. ZOFRAN [Concomitant]

REACTIONS (1)
  - Dyspnoea [None]
